FAERS Safety Report 9337612 (Version 1)
Quarter: 2013Q2

REPORT INFORMATION
  Report Type: Spontaneous
  Country: US (occurrence: US)
  Receive Date: 20130607
  Receipt Date: 20130607
  Transmission Date: 20140414
  Serious: Yes (Other)
  Sender: FDA-Public Use
  Company Number: US-US-EMD SERONO, INC.-7164842

PATIENT
  Age: 36 Year
  Sex: Female
  Weight: 109 kg

DRUGS (1)
  1. REBIF [Suspect]
     Indication: MULTIPLE SCLEROSIS
     Route: 058
     Dates: start: 20120525

REACTIONS (6)
  - Osteoma [Recovering/Resolving]
  - Central nervous system infection [Unknown]
  - Nocardiosis [Not Recovered/Not Resolved]
  - Gastritis [Unknown]
  - Splenomegaly [Not Recovered/Not Resolved]
  - Lymphadenopathy [Not Recovered/Not Resolved]
